FAERS Safety Report 6088830-4 (Version None)
Quarter: 2009Q1

REPORT INFORMATION
  Report Type: 
  Country: None (occurrence: None)
  Receive Date: 20090220
  Receipt Date: 20090220
  Transmission Date: 20090719
  Serious: Yes (Other)
  Sender: FDA-Public Use
  Company Number: None

PATIENT
  Age: 42 Year
  Sex: Female
  Weight: 88.4514 kg

DRUGS (1)
  1. PROAIR HFA [Suspect]
     Indication: ASTHMA
     Dosage: TWO PUFFS AS NEEDED 4-6 HOUR INHAL
     Route: 055
     Dates: start: 20081220, end: 20090219

REACTIONS (4)
  - DRUG EFFECT DELAYED [None]
  - EMOTIONAL DISTRESS [None]
  - LUNG DISORDER [None]
  - PRODUCT QUALITY ISSUE [None]
